FAERS Safety Report 11972784 (Version 1)
Quarter: 2016Q1

REPORT INFORMATION
  Report Type: Report from Study
  Country: TW (occurrence: TW)
  Receive Date: 20160128
  Receipt Date: 20160128
  Transmission Date: 20160526
  Serious: Yes (Hospitalization)
  Sender: FDA-Public Use
  Company Number: TW-ABBVIE-16K-153-1531014-00

PATIENT
  Age: 45 Year
  Sex: Male
  Weight: 102 kg

DRUGS (3)
  1. HUMIRA [Suspect]
     Active Substance: ADALIMUMAB
     Indication: ANKYLOSING SPONDYLITIS
     Route: 058
     Dates: start: 20100201, end: 20151221
  2. HUMIRA [Suspect]
     Active Substance: ADALIMUMAB
     Route: 058
     Dates: start: 20160104
  3. CELEBREX [Concomitant]
     Active Substance: CELECOXIB
     Indication: ANKYLOSING SPONDYLITIS
     Route: 048
     Dates: start: 20130729

REACTIONS (6)
  - Central pain syndrome [Not Recovered/Not Resolved]
  - Fall [Not Recovered/Not Resolved]
  - Head injury [Not Recovered/Not Resolved]
  - Cervical vertebral fracture [Not Recovered/Not Resolved]
  - Neck pain [Not Recovered/Not Resolved]
  - Dislocation of vertebra [Not Recovered/Not Resolved]

NARRATIVE: CASE EVENT DATE: 20151216
